FAERS Safety Report 4753406-5 (Version None)
Quarter: 2005Q3

REPORT INFORMATION
  Report Type: 
  Country: None (occurrence: None)
  Receive Date: 20050824
  Receipt Date: 20050810
  Transmission Date: 20060218
  Serious: Yes (Other)
  Sender: FDA-Public Use
  Company Number: EWC050543943

PATIENT
  Age: 6 Year
  Sex: Male
  Weight: 41 kg

DRUGS (3)
  1. STRATTERA [Suspect]
     Indication: ATTENTION DEFICIT/HYPERACTIVITY DISORDER
     Dosage: 50 MG DAY
     Dates: start: 20050225, end: 20050417
  2. STRATTERA [Suspect]
     Indication: TOURETTE'S DISORDER
     Dosage: 50 MG DAY
     Dates: start: 20050225, end: 20050417
  3. SPIROCORT (BUDESONIDE) [Concomitant]

REACTIONS (8)
  - ANOREXIA [None]
  - CONSTIPATION [None]
  - DYSPNOEA [None]
  - HEADACHE [None]
  - PAROSMIA [None]
  - TIC [None]
  - URINE FLOW DECREASED [None]
  - WEIGHT DECREASED [None]
